FAERS Safety Report 21264072 (Version 2)
Quarter: 2022Q3

REPORT INFORMATION
  Report Type: Spontaneous
  Country: JP (occurrence: JP)
  Receive Date: 20220829
  Receipt Date: 20220912
  Transmission Date: 20221027
  Serious: No
  Sender: FDA-Public Use
  Company Number: JP-NOVOPROD-951725

PATIENT
  Age: 69 Year
  Sex: Female

DRUGS (2)
  1. RYBELSUS [Suspect]
     Active Substance: SEMAGLUTIDE
     Indication: Type 2 diabetes mellitus
     Dosage: UNK, QD
     Route: 048
  2. CARBIDOPA\LEVODOPA [Suspect]
     Active Substance: CARBIDOPA\LEVODOPA
     Indication: Parkinson^s disease
     Dosage: 1 DF (ONE TABLET WHEN HUNGRY IN THE MORNING)
     Route: 048

REACTIONS (2)
  - Parkinson^s disease [Unknown]
  - Product prescribing issue [Unknown]
